FAERS Safety Report 6970935 (Version 23)
Quarter: 2013Q1

REPORT INFORMATION
  Report Type: Spontaneous
  Country: US (occurrence: US)
  Receive Date: 20090416
  Receipt Date: 20130329
  Transmission Date: 20140127
  Serious: Yes (Disabling, Other)
  Sender: FDA-Public Use
  Company Number: US-MSD-0904USA01370

PATIENT
  Sex: Female
  Weight: 58.97 kg

DRUGS (4)
  1. FOSAMAX [Suspect]
     Indication: OSTEOPOROSIS PROPHYLAXIS
     Dosage: 70 MG, QW
     Route: 048
     Dates: start: 20040323, end: 200602
  2. FOSAMAX [Suspect]
     Indication: OSTEOPOROSIS
     Dosage: 70 MG, QW
     Route: 048
     Dates: start: 20060616, end: 20070409
  3. FOSAMAX PLUS D [Suspect]
     Indication: OSTEOPOROSIS PROPHYLAXIS
     Dosage: 70MG/2800
     Route: 048
     Dates: start: 20070410, end: 20070625
  4. FOSAMAX PLUS D [Suspect]
     Indication: OSTEOPOROSIS

REACTIONS (42)
  - Back disorder [Unknown]
  - Bone disorder [Unknown]
  - Bunion [Unknown]
  - Osteomyelitis [Not Recovered/Not Resolved]
  - Osteonecrosis of jaw [Unknown]
  - Osteonecrosis of jaw [Recovered/Resolved]
  - Bone disorder [Unknown]
  - Fall [Unknown]
  - Face injury [Unknown]
  - Head injury [Unknown]
  - Concussion [Unknown]
  - Balance disorder [Unknown]
  - Bone loss [Unknown]
  - Bone density increased [Unknown]
  - Ear pain [Unknown]
  - Foot fracture [Recovered/Resolved]
  - Fluid retention [Unknown]
  - Neuropathy peripheral [Unknown]
  - Intervertebral disc degeneration [Unknown]
  - Arachnoid cyst [Unknown]
  - Sciatica [Unknown]
  - Piriformis syndrome [Unknown]
  - Radiculopathy [Unknown]
  - Neuroma [Unknown]
  - Foot deformity [Unknown]
  - Exostosis [Unknown]
  - Oedema [Recovering/Resolving]
  - Tendinous contracture [Unknown]
  - Sinus disorder [Unknown]
  - Vestibular disorder [Unknown]
  - Oscillopsia [Unknown]
  - Skin lesion [Unknown]
  - Tooth infection [Unknown]
  - Dental fistula [Unknown]
  - Blood glucose decreased [Unknown]
  - Increased tendency to bruise [Unknown]
  - Biopsy [Unknown]
  - Vertigo positional [Unknown]
  - Vertigo [Unknown]
  - Vertigo [Recovered/Resolved]
  - Pain in extremity [Unknown]
  - Back pain [Not Recovered/Not Resolved]
